FAERS Safety Report 8904685 (Version 1)
Quarter: 2012Q4

REPORT INFORMATION
  Report Type: Report from Study
  Country: DE (occurrence: DE)
  Receive Date: 20121112
  Receipt Date: 20121112
  Transmission Date: 20130627
  Serious: Yes (Death)
  Sender: FDA-Public Use
  Company Number: DE-PFIZER INC-2012277548

PATIENT
  Age: 30 Year
  Sex: Male

DRUGS (2)
  1. LIDOCAINE HCL [Suspect]
     Dosage: UNK
  2. COCAINE [Suspect]
     Dosage: UNK

REACTIONS (2)
  - Overdose [Fatal]
  - Toxicity to various agents [Fatal]
